FAERS Safety Report 12564981 (Version 2)
Quarter: 2017Q2

REPORT INFORMATION
  Report Type: Spontaneous
  Country: FR (occurrence: FR)
  Receive Date: 20160718
  Receipt Date: 20170406
  Transmission Date: 20170830
  Serious: Yes (Death, Hospitalization)
  Sender: FDA-Public Use
  Company Number: FR-ACCORD-042458

PATIENT
  Age: 60 Year
  Sex: Female

DRUGS (8)
  1. ESOMEPRAZOLE/ESOMEPRAZOLE MAGNESIUM/ESOMEPRAZOLE SODIUM [Concomitant]
     Dates: start: 201502
  2. ALENDRONATE SODIUM/ALENDRONIC ACID [Concomitant]
     Dosage: DOSE: 70 MG/WEEK
     Dates: start: 201502
  3. HYDROXYCHLOROQUINE [Concomitant]
     Active Substance: HYDROXYCHLOROQUINE
     Indication: SYSTEMIC LUPUS ERYTHEMATOSUS
     Dates: start: 201404
  4. METHOTREXATE. [Suspect]
     Active Substance: METHOTREXATE
     Indication: SYSTEMIC LUPUS ERYTHEMATOSUS
     Dates: start: 201404
  5. PREDNISONE. [Suspect]
     Active Substance: PREDNISONE
     Indication: SYSTEMIC LUPUS ERYTHEMATOSUS
     Dates: start: 201404
  6. MYCOPHENOLIC ACID. [Suspect]
     Active Substance: MYCOPHENOLIC ACID
     Indication: LUPUS NEPHRITIS
     Dates: start: 201502
  7. ROSUVASTATIN/ROSUVASTATIN CALCIUM [Concomitant]
     Dates: start: 201502
  8. CALCIUM/COLECALCIFEROL [Concomitant]
     Dosage: DOSE: 1 TABLET/DAY
     Dates: start: 201502

REACTIONS (5)
  - Subdural haematoma [Fatal]
  - Diffuse large B-cell lymphoma [Fatal]
  - Off label use [Unknown]
  - Meningitis aseptic [Fatal]
  - Epstein-Barr virus infection [Fatal]
